FAERS Safety Report 24567197 (Version 3)
Quarter: 2025Q3

REPORT INFORMATION
  Report Type: Report from Study
  Country: US (occurrence: US)
  Receive Date: 20241030
  Receipt Date: 20250809
  Transmission Date: 20251021
  Serious: Yes (Hospitalization, Other)
  Sender: ALEXION PHARMACEUTICALS
  Company Number: US-AstraZeneca-CH-00732184A

PATIENT
  Sex: Male

DRUGS (1)
  1. ULTOMIRIS [Suspect]
     Active Substance: RAVULIZUMAB-CWVZ
     Indication: Myasthenia gravis
     Route: 065

REACTIONS (7)
  - Gallbladder disorder [Unknown]
  - Micturition disorder [Unknown]
  - Hepatic cancer [Unknown]
  - Hepatitis [Unknown]
  - COVID-19 [Unknown]
  - Dysphagia [Unknown]
  - Mastication disorder [Unknown]
